FAERS Safety Report 17570402 (Version 1)
Quarter: 2020Q1

REPORT INFORMATION
  Report Type: Spontaneous
  Country: US (occurrence: US)
  Receive Date: 20200323
  Receipt Date: 20200323
  Transmission Date: 20200409
  Serious: Yes (Death, Hospitalization, Other)
  Sender: FDA-Public Use
  Company Number: US-AUROBINDO-AUR-APL-2020-013965

PATIENT
  Age: 59 Year
  Sex: Female

DRUGS (4)
  1. DANTROLENE SODIUM. [Suspect]
     Active Substance: DANTROLENE SODIUM
     Indication: PRODUCT USED FOR UNKNOWN INDICATION
     Dosage: UNK
     Route: 065
  2. ARIPIPRAZOLE. [Suspect]
     Active Substance: ARIPIPRAZOLE
     Indication: PRODUCT USED FOR UNKNOWN INDICATION
     Dosage: UNK
     Route: 065
  3. LORAZEPAM. [Suspect]
     Active Substance: LORAZEPAM
     Indication: PRODUCT USED FOR UNKNOWN INDICATION
     Dosage: UNK
     Route: 065
  4. IRON [Suspect]
     Active Substance: IRON
     Indication: ANAEMIA
     Dosage: UNK
     Route: 065

REACTIONS (16)
  - Cardiac arrest [Fatal]
  - Encephalopathy [Unknown]
  - Labile blood pressure [Unknown]
  - Pain in extremity [Unknown]
  - Areflexia [Unknown]
  - Metabolic acidosis [Unknown]
  - Tachypnoea [Unknown]
  - Drug ineffective [Unknown]
  - Musculoskeletal stiffness [Unknown]
  - Autonomic nervous system imbalance [Unknown]
  - Neuroleptic malignant syndrome [Unknown]
  - Respiratory distress [Unknown]
  - Renal failure [Unknown]
  - Upper gastrointestinal haemorrhage [Unknown]
  - Tachycardia [Unknown]
  - Muscle rigidity [Unknown]
